FAERS Safety Report 15165435 (Version 1)
Quarter: 2018Q3

REPORT INFORMATION
  Report Type: Report from Study
  Country: DE (occurrence: DE)
  Receive Date: 20180719
  Receipt Date: 20180719
  Transmission Date: 20181010
  Serious: Yes (Congenital Anomaly, Other)
  Sender: FDA-Public Use
  Company Number: DE-AUROBINDO-AUR-APL-2018-036972

PATIENT
  Sex: Female
  Weight: .33 kg

DRUGS (9)
  1. AMLODIPINE [Suspect]
     Active Substance: AMLODIPINE BESYLATE
     Indication: PRODUCT USED FOR UNKNOWN INDICATION
     Dosage: PREGNANCY WEEK 0 TO 7 (+2)
     Route: 064
  2. INDAPAMIDE. [Suspect]
     Active Substance: INDAPAMIDE
     Indication: PRODUCT USED FOR UNKNOWN INDICATION
     Dosage: PREGNANCY WEEK 0 TO 7 (+2)
     Route: 064
  3. PERINDOPRIL [Suspect]
     Active Substance: PERINDOPRIL
     Indication: PRODUCT USED FOR UNKNOWN INDICATION
     Dosage: PREGNANCY WEEK 0 TO 7 (+2)
     Route: 064
  4. BISOPROLOL [Suspect]
     Active Substance: BISOPROLOL
     Indication: PRODUCT USED FOR UNKNOWN INDICATION
     Dosage: PREGNANCY WEEK 0 TO 7 (+2)
     Route: 064
  5. ALISKIREN [Suspect]
     Active Substance: ALISKIREN
     Indication: PRODUCT USED FOR UNKNOWN INDICATION
     Dosage: PREGNANCY WEEK 0 TO 7 (+2)
     Route: 064
  6. HYDROCHLOROTHIAZIDE. [Suspect]
     Active Substance: HYDROCHLOROTHIAZIDE
     Indication: PRODUCT USED FOR UNKNOWN INDICATION
     Dosage: PREGNANCY WEEK 0 TO 7 (+2)
     Route: 064
  7. METOPROLOL. [Suspect]
     Active Substance: METOPROLOL
     Indication: PRODUCT USED FOR UNKNOWN INDICATION
     Dosage: PREGNANCY WEEK 7 (+3) TO 38
     Route: 064
  8. METFORMIN [Suspect]
     Active Substance: METFORMIN HYDROCHLORIDE
     Indication: PRODUCT USED FOR UNKNOWN INDICATION
     Dosage: PREGNANCY WEEK 0 TO 7 (+2)
     Route: 064
  9. METHYLDOPA. [Suspect]
     Active Substance: METHYLDOPA
     Indication: PRODUCT USED FOR UNKNOWN INDICATION
     Dosage: PREGNANCY WEEK 7(+3) TO 10
     Route: 064

REACTIONS (3)
  - Foetal exposure during pregnancy [Unknown]
  - Conjoined twins [Unknown]
  - Intestinal malrotation [Unknown]
